FAERS Safety Report 18950368 (Version 1)
Quarter: 2021Q1

REPORT INFORMATION
  Report Type: Spontaneous
  Country: US (occurrence: US)
  Receive Date: 20210228
  Receipt Date: 20210228
  Transmission Date: 20210420
  Serious: No
  Sender: FDA-Public Use
  Company Number: US-ROCHE-2732665

PATIENT
  Sex: Female

DRUGS (1)
  1. XOLAIR [Suspect]
     Active Substance: OMALIZUMAB
     Indication: ASTHMA
     Route: 065

REACTIONS (10)
  - Asthma exercise induced [Unknown]
  - Hypersensitivity [Unknown]
  - Weight increased [Unknown]
  - Synovial cyst [Unknown]
  - Skin fissures [Unknown]
  - General physical health deterioration [Unknown]
  - Off label use [Unknown]
  - Intentional product use issue [Unknown]
  - Drug ineffective [Unknown]
  - Injection site pain [Unknown]
